FAERS Safety Report 5493137-X (Version None)
Quarter: 2007Q4

REPORT INFORMATION
  Report Type: 
  Country: None (occurrence: None)
  Receive Date: 20071023
  Receipt Date: 20071009
  Transmission Date: 20080405
  Serious: Yes (Death)
  Sender: FDA-Public Use
  Company Number: US-AMGEN-STX242664

PATIENT
  Sex: Female
  Weight: 49.9 kg

DRUGS (21)
  1. ENBREL [Suspect]
     Indication: RHEUMATOID ARTHRITIS
     Route: 065
     Dates: end: 20070601
  2. METHOTREXATE [Concomitant]
     Route: 065
  3. PREDNISONE [Concomitant]
     Route: 065
  4. PAXIL [Concomitant]
     Route: 065
  5. OXYCONTIN [Concomitant]
     Route: 065
  6. DEMEROL [Concomitant]
     Route: 065
  7. CELEBREX [Concomitant]
     Route: 065
  8. ASPIRIN [Concomitant]
     Route: 065
  9. HYDROCHLOROTHIAZIDE [Concomitant]
     Route: 065
  10. FOLIC ACID [Concomitant]
     Route: 065
  11. PRILOSEC [Concomitant]
     Route: 065
  12. AZATHIOPRINE [Concomitant]
     Route: 065
  13. DULCOLAX [Concomitant]
     Route: 065
  14. NEURONTIN [Concomitant]
     Route: 065
  15. COLCHICINE [Concomitant]
     Route: 065
  16. DILANTIN [Concomitant]
     Route: 065
  17. OMEGA 3 [Concomitant]
     Route: 065
  18. VITAMIN CAP [Concomitant]
     Route: 065
  19. ACTONEL [Concomitant]
     Route: 065
  20. ANTIVERT [Concomitant]
     Route: 065
  21. AEROBID [Concomitant]
     Route: 065

REACTIONS (19)
  - ABDOMINAL PAIN UPPER [None]
  - ARRHYTHMIA [None]
  - ARTHRALGIA [None]
  - BACK PAIN [None]
  - CARDIAC MURMUR [None]
  - DEPRESSION [None]
  - DRUG INEFFECTIVE [None]
  - FALL [None]
  - FATIGUE [None]
  - HIP FRACTURE [None]
  - JOINT SWELLING [None]
  - MIGRAINE [None]
  - MUSCULOSKELETAL STIFFNESS [None]
  - NEUROPATHY PERIPHERAL [None]
  - POOR QUALITY SLEEP [None]
  - PRODUCTIVE COUGH [None]
  - PYREXIA [None]
  - RHEUMATOID ARTHRITIS [None]
  - URINARY TRACT INFECTION [None]
